FAERS Safety Report 18224800 (Version 1)
Quarter: 2020Q3

REPORT INFORMATION
  Report Type: Other
  Country: DE (occurrence: DE)
  Receive Date: 20200903
  Receipt Date: 20200903
  Transmission Date: 20201103
  Serious: Yes (Other)
  Sender: FDA-Public Use
  Company Number: DE-ROCHE-2349626

PATIENT
  Age: 33 Year
  Sex: Female
  Weight: 115 kg

DRUGS (13)
  1. OCRELIZUMAB. [Suspect]
     Active Substance: OCRELIZUMAB
     Route: 042
     Dates: start: 201806
  2. PANTOZOL [Concomitant]
     Active Substance: PANTOPRAZOLE SODIUM
     Route: 048
     Dates: start: 20181214
  3. CITALOPRAM [Concomitant]
     Active Substance: CITALOPRAM HYDROBROMIDE
     Route: 048
     Dates: start: 20181214
  4. DIBENZYRAN [Concomitant]
     Active Substance: PHENOXYBENZAMINE HYDROCHLORIDE
     Indication: ATONIC URINARY BLADDER
     Route: 048
     Dates: start: 20181214
  5. LEMTRADA [Suspect]
     Active Substance: ALEMTUZUMAB
     Route: 065
  6. GABAPENTIN. [Concomitant]
     Active Substance: GABAPENTIN
     Indication: PAIN
     Route: 048
     Dates: start: 20181214
  7. IBUPROFEN. [Concomitant]
     Active Substance: IBUPROFEN
     Indication: PAIN
     Route: 048
     Dates: start: 20181214
  8. DOXEPIN [Concomitant]
     Active Substance: DOXEPIN
     Route: 048
     Dates: start: 20181214
  9. LEMTRADA [Suspect]
     Active Substance: ALEMTUZUMAB
     Route: 065
  10. LEMTRADA [Suspect]
     Active Substance: ALEMTUZUMAB
     Indication: RELAPSING-REMITTING MULTIPLE SCLEROSIS
     Route: 065
  11. FOLIC ACID. [Concomitant]
     Active Substance: FOLIC ACID
     Indication: HYPOVITAMINOSIS
     Route: 048
     Dates: start: 20181214, end: 20190614
  12. OCRELIZUMAB. [Suspect]
     Active Substance: OCRELIZUMAB
     Indication: RELAPSING-REMITTING MULTIPLE SCLEROSIS
     Route: 042
     Dates: start: 20171122, end: 20171206
  13. VESICARE [Concomitant]
     Active Substance: SOLIFENACIN SUCCINATE
     Indication: MICTURITION URGENCY
     Route: 048
     Dates: start: 20181214

REACTIONS (3)
  - Neoplasm [Recovered/Resolved]
  - Papilloma viral infection [Recovered/Resolved]
  - Skin disorder [Unknown]

NARRATIVE: CASE EVENT DATE: 20181121
